FAERS Safety Report 8320327-0 (Version None)
Quarter: 2012Q2

REPORT INFORMATION
  Report Type: 
  Country: None (occurrence: None)
  Receive Date: 20120430
  Receipt Date: 20120423
  Transmission Date: 20120825
  Serious: No
  Sender: FDA-Public Use
  Company Number: US-PFIZER INC-2012042317

PATIENT
  Sex: Female
  Weight: 49.887 kg

DRUGS (5)
  1. IRON SLOW FE [Concomitant]
     Dosage: UNK
  2. SPRINTEC [Concomitant]
     Dosage: UNK
  3. AMBIEN [Concomitant]
     Dosage: UNK
  4. ADDERALL 5 [Concomitant]
     Dosage: UNK
  5. LYRICA [Suspect]
     Indication: PAIN
     Dosage: 150 MG, 2X/DAY
     Route: 048
     Dates: start: 20111201

REACTIONS (7)
  - MEMORY IMPAIRMENT [None]
  - PAIN [None]
  - AFFECT LABILITY [None]
  - AGITATION [None]
  - IRRITABILITY [None]
  - FATIGUE [None]
  - WEIGHT INCREASED [None]
